FAERS Safety Report 18812172 (Version 1)
Quarter: 2021Q1

REPORT INFORMATION
  Report Type: Report from Study
  Country: US (occurrence: US)
  Receive Date: 20210129
  Receipt Date: 20210129
  Transmission Date: 20210419
  Serious: Yes (Other)
  Sender: FDA-Public Use
  Company Number: US-INCYTE CORPORATION-2021IN000753

PATIENT

DRUGS (1)
  1. INCB054828 [Suspect]
     Active Substance: PEMIGATINIB
     Indication: BLADDER CANCER
     Dosage: 9 MILLIGRAM, QD
     Route: 048
     Dates: start: 20201228

REACTIONS (1)
  - Subretinal fluid [Unknown]

NARRATIVE: CASE EVENT DATE: 20210121
